FAERS Safety Report 23791462 (Version 2)
Quarter: 2024Q2

REPORT INFORMATION
  Report Type: Report from Study
  Country: US (occurrence: US)
  Receive Date: 20240429
  Receipt Date: 20240513
  Transmission Date: 20240716
  Serious: Yes (Hospitalization, Other)
  Sender: FDA-Public Use
  Company Number: US-JNJFOC-20240332998

PATIENT
  Age: 56 Year
  Sex: Female
  Weight: 94.1 kg

DRUGS (2)
  1. EPOPROSTENOL SODIUM [Suspect]
     Active Substance: EPOPROSTENOL SODIUM
     Indication: Pulmonary hypertension
     Dosage: VELETRI 1.5MG VIAL INTRAVENOUS
     Route: 042
  2. TADALAFIL [Concomitant]
     Active Substance: TADALAFIL
     Indication: Product used for unknown indication
     Route: 065

REACTIONS (5)
  - Hepatic cirrhosis [Unknown]
  - Ascites [Unknown]
  - Ovarian cancer [Unknown]
  - Nasopharyngitis [Unknown]
  - Renal disorder [Unknown]

NARRATIVE: CASE EVENT DATE: 20240305
